FAERS Safety Report 4984478-0 (Version None)
Quarter: 2006Q2

REPORT INFORMATION
  Report Type: 
  Country: None (occurrence: None)
  Receive Date: 20060427
  Receipt Date: 20060420
  Transmission Date: 20061013
  Serious: Yes (Life-Threatening, Hospitalization)
  Sender: FDA-Public Use
  Company Number: CH-GLAXOSMITHKLINE-B0421425A

PATIENT
  Age: 71 Year
  Sex: Male
  Weight: 75 kg

DRUGS (5)
  1. CLAMOXYL [Suspect]
     Indication: INJURY
     Dosage: 2250MG UNKNOWN
     Route: 048
     Dates: start: 20051201, end: 20060204
  2. ZYVOXID [Suspect]
     Indication: INJURY
     Dosage: 600MG TWICE PER DAY
     Route: 048
     Dates: start: 20051201, end: 20060204
  3. ASPIRIN [Suspect]
     Indication: PERIPHERAL VASCULAR DISORDER
     Dosage: 100MG UNKNOWN
     Route: 048
     Dates: start: 20050101
  4. SELIPRAN [Concomitant]
     Indication: PERIPHERAL VASCULAR DISORDER
     Dosage: 40MG PER DAY
     Route: 048
     Dates: start: 20050101
  5. HYDROCHLOROTHIAZIDE + LISINOPRIL [Concomitant]
     Indication: ESSENTIAL HYPERTENSION
     Route: 048
     Dates: start: 20050101

REACTIONS (7)
  - ANAEMIA [None]
  - GASTROINTESTINAL HAEMORRHAGE [None]
  - HAEMATEMESIS [None]
  - HYPOTENSION [None]
  - HYPOVOLAEMIC SHOCK [None]
  - THROMBOCYTOPENIA [None]
  - UPPER GASTROINTESTINAL HAEMORRHAGE [None]
